FAERS Safety Report 7519987-3 (Version None)
Quarter: 2011Q2

REPORT INFORMATION
  Report Type: 
  Country: None (occurrence: None)
  Receive Date: 20110602
  Receipt Date: 20110523
  Transmission Date: 20111010
  Serious: Yes (Death, Other)
  Sender: FDA-Public Use
  Company Number: JP-CELGENEUS-087-21880-10111393

PATIENT
  Sex: Male
  Weight: 53.9 kg

DRUGS (14)
  1. DEXART [Concomitant]
     Indication: MULTIPLE MYELOMA
     Dosage: 33 MILLIGRAM
     Route: 041
     Dates: start: 20100927, end: 20100930
  2. DENOSINE [Concomitant]
     Dosage: 500 MILLIGRAM
     Route: 041
     Dates: start: 20100918, end: 20101005
  3. MEROPENEM [Concomitant]
     Dosage: 3 GRAM
     Route: 041
     Dates: start: 20100930, end: 20101014
  4. LANSOPRAZOLE [Concomitant]
     Indication: PROPHYLAXIS
     Dosage: 15 MILLIGRAM
     Route: 048
     Dates: end: 20101005
  5. RISPERDAL OD [Concomitant]
     Dosage: 1 MILLIGRAM
     Route: 048
     Dates: start: 20100923, end: 20101005
  6. PREDNISOLONE [Concomitant]
     Dosage: 20 MILLIGRAM
     Route: 041
     Dates: start: 20101001, end: 20101016
  7. METHYCOBAL [Concomitant]
     Dosage: 1.5 MILLIGRAM
     Route: 048
     Dates: end: 20101005
  8. HALOPERIDOL [Concomitant]
     Dosage: 10 MILLIGRAM
     Route: 041
     Dates: start: 20101011
  9. SULFAMETHOXAZOLE [Concomitant]
     Indication: PROPHYLAXIS
     Dosage: 4 TABLET
     Route: 048
     Dates: end: 20101004
  10. ALOSITOL [Concomitant]
     Dosage: 300 MILLIGRAM
     Route: 048
     Dates: start: 20100930, end: 20101005
  11. DUROTEP [Concomitant]
     Dosage: 2.1 MILLIGRAM
     Route: 065
     Dates: start: 20101005, end: 20101008
  12. REVLIMID [Suspect]
     Indication: MULTIPLE MYELOMA
     Dosage: 10 MILLIGRAM
     Route: 048
     Dates: start: 20101001, end: 20101002
  13. FUNGUARD [Concomitant]
     Dosage: 150 MILLIGRAM
     Route: 041
     Dates: start: 20100915, end: 20101016
  14. LANSOPRAZOLE [Concomitant]
     Dosage: 30 MILLIGRAM
     Route: 041
     Dates: start: 20101005, end: 20101016

REACTIONS (6)
  - THROMBOCYTOPENIA [None]
  - MULTIPLE MYELOMA [None]
  - NEUTROPENIA [None]
  - ANAEMIA [None]
  - SUPRAVENTRICULAR TACHYCARDIA [None]
  - DEHYDRATION [None]
